FAERS Safety Report 25069279 (Version 1)
Quarter: 2025Q1

REPORT INFORMATION
  Report Type: Spontaneous
  Country: ES (occurrence: ES)
  Receive Date: 20250312
  Receipt Date: 20250312
  Transmission Date: 20250408
  Serious: Yes (Hospitalization)
  Sender: MYLAN
  Company Number: ES-MYLANLABS-2025M1020627

PATIENT
  Age: 8 Year
  Sex: Male

DRUGS (3)
  1. VORICONAZOLE [Interacting]
     Active Substance: VORICONAZOLE
     Indication: Antifungal treatment
  2. VORICONAZOLE [Interacting]
     Active Substance: VORICONAZOLE
  3. METAMIZOLE [Interacting]
     Active Substance: METAMIZOLE
     Indication: Analgesic therapy
     Dosage: 480 MILLIGRAM, Q8H

REACTIONS (2)
  - Drug interaction [Recovered/Resolved]
  - Drug level decreased [Recovered/Resolved]
